FAERS Safety Report 21951701 (Version 1)
Quarter: 2023Q1

REPORT INFORMATION
  Report Type: Spontaneous
  Country: US (occurrence: None)
  Receive Date: 20230203
  Receipt Date: 20230203
  Transmission Date: 20230418
  Serious: Yes (Other)
  Sender: FDA-Public Use
  Company Number: None

PATIENT
  Age: 82 Year
  Sex: Female
  Weight: 95.25 kg

DRUGS (13)
  1. EVENITY [Suspect]
     Active Substance: ROMOSOZUMAB-AQQG
     Indication: Osteoporosis
     Dosage: OTHER FREQUENCY : EVERY 4 WEEKS?
     Route: 058
     Dates: start: 20220829
  2. ZOLOFT [Concomitant]
     Active Substance: SERTRALINE HYDROCHLORIDE
  3. TORSEMIDE [Concomitant]
     Active Substance: TORSEMIDE
  4. Sulfaslazine 500mg [Concomitant]
  5. MOBIC [Concomitant]
     Active Substance: MELOXICAM
  6. Klor-Con 10 MEW [Concomitant]
  7. ATENOLOL [Concomitant]
     Active Substance: ATENOLOL
  8. Lovastatin 40 [Concomitant]
  9. SERTRALINE [Concomitant]
     Active Substance: SERTRALINE HYDROCHLORIDE
  10. LINZESS [Concomitant]
     Active Substance: LINACLOTIDE
  11. Folin Acid 1 mg [Concomitant]
  12. PRAMIPEXOLE [Concomitant]
     Active Substance: PRAMIPEXOLE
  13. Tramadol 50g [Concomitant]

REACTIONS (1)
  - Constipation [None]

NARRATIVE: CASE EVENT DATE: 20230203
